FAERS Safety Report 15193610 (Version 1)
Quarter: 2018Q3

REPORT INFORMATION
  Report Type: Spontaneous
  Country: DE (occurrence: DE)
  Receive Date: 20180725
  Receipt Date: 20180725
  Transmission Date: 20181010
  Serious: Yes (Other)
  Sender: FDA-Public Use
  Company Number: DE-BRISTOL-MYERS SQUIBB COMPANY-BMS-2018-067975

PATIENT
  Age: 33 Year
  Sex: Female

DRUGS (1)
  1. ELIQUIS [Suspect]
     Active Substance: APIXABAN
     Indication: VENA CAVA THROMBOSIS
     Dosage: 2.5 MG, BID
     Route: 065

REACTIONS (2)
  - Endometriosis [Unknown]
  - Product use in unapproved indication [Unknown]
